FAERS Safety Report 9814393 (Version 1)
Quarter: 2014Q1

REPORT INFORMATION
  Report Type: Report from Study
  Country: NZ (occurrence: NZ)
  Receive Date: 20140113
  Receipt Date: 20140113
  Transmission Date: 20141002
  Serious: Yes (Other)
  Sender: FDA-Public Use
  Company Number: PHHY2014NZ002357

PATIENT
  Sex: Male
  Weight: 95 kg

DRUGS (3)
  1. CLOZARIL [Suspect]
     Dosage: 500 MG DAILY
     Dates: start: 20130906
  2. OLANZAPINE [Concomitant]
     Dosage: 300 MG, DAILY
     Route: 030
  3. OLANZAPINE [Concomitant]
     Dosage: 405 MG, TWO WEEKLY
     Route: 030

REACTIONS (2)
  - Schizophrenia [Unknown]
  - Somatoform disorder [Unknown]
